FAERS Safety Report 9154542 (Version 1)
Quarter: 2013Q1

REPORT INFORMATION
  Report Type: Spontaneous
  Country: US (occurrence: None)
  Receive Date: 20130306
  Receipt Date: 20130306
  Transmission Date: 20140127
  Serious: Yes (Other)
  Sender: FDA-Public Use
  Company Number: None

PATIENT
  Age: 43 Year
  Sex: Female
  Weight: 68.04 kg

DRUGS (2)
  1. CLARITIN D [Suspect]
     Indication: SINUS DISORDER
     Dosage: 1 TABLET DAILY PO
     Route: 048
     Dates: start: 20110301, end: 20130219
  2. CLARITIN D [Suspect]
     Indication: MULTIPLE ALLERGIES
     Dosage: 1 TABLET DAILY PO
     Route: 048
     Dates: start: 20110301, end: 20130219

REACTIONS (5)
  - Hypertension [None]
  - Drug withdrawal syndrome [None]
  - Headache [None]
  - Migraine [None]
  - Nausea [None]
